FAERS Safety Report 4453345-3 (Version None)
Quarter: 2004Q3

REPORT INFORMATION
  Report Type: 
  Country: None (occurrence: None)
  Receive Date: 20040902
  Receipt Date: 20040519
  Transmission Date: 20050211
  Serious: No
  Sender: FDA-Public Use
  Company Number: 200417923BWH

PATIENT
  Age: 83 Year
  Sex: Male

DRUGS (4)
  1. LEVITRA [Suspect]
     Indication: ERECTILE DYSFUNCTION
     Dosage: ORAL
     Route: 048
     Dates: start: 20040401
  2. LEVITRA [Suspect]
     Indication: ERECTILE DYSFUNCTION
     Dosage: ORAL
     Route: 048
     Dates: start: 20040501
  3. VIAGRA [Concomitant]
  4. CIALIS ^GLAXOSMITHKLINE^ [Concomitant]

REACTIONS (1)
  - ERECTILE DYSFUNCTION [None]
